FAERS Safety Report 7968577-7 (Version None)
Quarter: 2011Q4

REPORT INFORMATION
  Report Type: 
  Country: None (occurrence: None)
  Receive Date: 20111209
  Receipt Date: 20111201
  Transmission Date: 20120403
  Serious: Yes (Hospitalization, Disabling, Other)
  Sender: FDA-Public Use
  Company Number: US-MERCK-1107USA03282

PATIENT
  Age: 59 Year
  Sex: Female
  Weight: 72 kg

DRUGS (10)
  1. VITAMINS (UNSPECIFIED) [Concomitant]
     Route: 065
     Dates: start: 20000101
  2. ALENDRONATE SODIUM [Suspect]
     Indication: OSTEOPENIA
     Route: 048
     Dates: start: 20080301, end: 20100301
  3. FOSAMAX PLUS D [Suspect]
     Indication: OSTEOPENIA
     Route: 048
     Dates: start: 20061201
  4. ASCORBIC ACID [Concomitant]
     Route: 065
     Dates: start: 20000101
  5. OMEGA-3 MARINE TRIGLYCERIDES [Concomitant]
     Route: 065
     Dates: start: 20000101
  6. ALENDRONATE SODIUM [Suspect]
     Indication: OSTEOPOROSIS
     Route: 048
     Dates: start: 20080301, end: 20100301
  7. CALCIUM (UNSPECIFIED) AND VITAMIN D (UNSPECIFIED) [Concomitant]
     Route: 065
     Dates: start: 20000101
  8. FOSAMAX [Suspect]
     Indication: OSTEOPOROSIS
     Route: 048
     Dates: start: 19990101, end: 20080301
  9. FOSAMAX [Suspect]
     Indication: OSTEOPENIA
     Route: 048
     Dates: start: 19990101, end: 20080301
  10. VITAMIN B (UNSPECIFIED) [Concomitant]
     Route: 065
     Dates: start: 20000101

REACTIONS (34)
  - CHOLELITHIASIS [None]
  - MUSCLE SPASMS [None]
  - HYPOTHERMIA [None]
  - VITAMIN D DEFICIENCY [None]
  - POLLAKIURIA [None]
  - OSTEOGENESIS IMPERFECTA [None]
  - FEMUR FRACTURE [None]
  - OSTEOARTHRITIS [None]
  - MICTURITION URGENCY [None]
  - PAIN IN EXTREMITY [None]
  - OSTEOMA [None]
  - HAEMATOMA [None]
  - DYSLIPIDAEMIA [None]
  - HAEMORRHOIDS [None]
  - OBESITY [None]
  - HERPES SIMPLEX [None]
  - VARICOSE VEIN [None]
  - PELVIC PAIN [None]
  - HYPERLIPIDAEMIA [None]
  - INTERMITTENT CLAUDICATION [None]
  - DEPRESSION [None]
  - APPENDIX DISORDER [None]
  - HERPES ZOSTER [None]
  - ANAEMIA [None]
  - SPINAL COLUMN STENOSIS [None]
  - LOW TURNOVER OSTEOPATHY [None]
  - WRIST FRACTURE [None]
  - DIVERTICULUM [None]
  - DYSURIA [None]
  - CALCIUM DEFICIENCY [None]
  - INCREASED TENDENCY TO BRUISE [None]
  - BLOOD GLUCOSE INCREASED [None]
  - OSTEITIS DEFORMANS [None]
  - CYSTITIS INTERSTITIAL [None]
